FAERS Safety Report 4832167-5 (Version None)
Quarter: 2005Q4

REPORT INFORMATION
  Report Type: 
  Country: None (occurrence: None)
  Receive Date: 20051116
  Receipt Date: 20051108
  Transmission Date: 20060501
  Serious: Yes (Hospitalization)
  Sender: FDA-Public Use
  Company Number: 200510721BFR

PATIENT
  Age: 80 Year
  Sex: Male
  Weight: 70 kg

DRUGS (3)
  1. CIPROFLOXACIN [Suspect]
     Dosage: 500 MG, BID, ORAL
     Route: 048
     Dates: start: 20051017
  2. VASTAREL [Concomitant]
  3. PIASCLEDINE [Concomitant]

REACTIONS (3)
  - CONFUSIONAL STATE [None]
  - FEELING DRUNK [None]
  - HEADACHE [None]
